FAERS Safety Report 20257363 (Version 4)
Quarter: 2022Q3

REPORT INFORMATION
  Report Type: Spontaneous
  Country: FR (occurrence: FR)
  Receive Date: 20211230
  Receipt Date: 20220711
  Transmission Date: 20221027
  Serious: Yes (Hospitalization, Disabling, Other)
  Sender: FDA-Public Use
  Company Number: FR-BAXTER-2021BAX037836

PATIENT
  Age: 28 Year
  Sex: Female

DRUGS (17)
  1. METHOTREXATE [Suspect]
     Active Substance: METHOTREXATE
     Indication: Product used for unknown indication
     Dosage: 15 MILLIGRAM, QW
     Route: 065
     Dates: start: 200810, end: 200905
  2. METHOTREXATE [Suspect]
     Active Substance: METHOTREXATE
     Dosage: 15 DOSAGE FORM, QW
     Route: 065
     Dates: start: 200810, end: 200905
  3. PREDNISONE [Suspect]
     Active Substance: PREDNISONE
     Indication: Antisynthetase syndrome
     Dosage: 1 DOSAGE FORM (1 MG/KG ) (START DATE:28-OCT-2013 )
     Route: 065
  4. PREDNISONE [Suspect]
     Active Substance: PREDNISONE
     Dosage: 1 DOSAGE FORM (1 MG/KG )
     Route: 065
     Dates: start: 20131030
  5. PREDNISONE [Suspect]
     Active Substance: PREDNISONE
     Dosage: 1 DOSAGE FORM (1 MG/KG )
     Route: 065
     Dates: start: 20131029
  6. SOLU-MEDROL [Suspect]
     Active Substance: METHYLPREDNISOLONE SODIUM SUCCINATE
     Indication: Antisynthetase syndrome
     Dosage: 500 DOSAGE FORM, QD (500 MG, QD) (START DATE: 28-OCT-2013 )
     Route: 040
  7. SOLU-MEDROL [Suspect]
     Active Substance: METHYLPREDNISOLONE SODIUM SUCCINATE
     Dosage: 500 DOSAGE FORM, QD (500 MG, QD)
     Route: 040
     Dates: start: 20131029
  8. SOLU-MEDROL [Suspect]
     Active Substance: METHYLPREDNISOLONE SODIUM SUCCINATE
     Dosage: 500 DOSAGE FORM, QD (500 MG, QD)
     Route: 040
     Dates: start: 20131030
  9. CYCLOPHOSPHAMIDE [Suspect]
     Active Substance: CYCLOPHOSPHAMIDE
     Indication: Antisynthetase syndrome
     Dosage: 1 DOSAGE FORM (1 G, 6 TH CYCLE)
     Route: 042
  10. CYCLOPHOSPHAMIDE [Suspect]
     Active Substance: CYCLOPHOSPHAMIDE
     Dosage: 700 DOSAGE FORM (700 MG/M3, SECOND CYCLE )
     Route: 042
     Dates: start: 20130605
  11. CYCLOPHOSPHAMIDE [Suspect]
     Active Substance: CYCLOPHOSPHAMIDE
     Dosage: UNK, 4TH INFUSION
     Route: 042
     Dates: start: 20131030
  12. CYCLOPHOSPHAMIDE [Suspect]
     Active Substance: CYCLOPHOSPHAMIDE
     Dosage: UNK, 5 TH COURSE
     Route: 042
  13. CYCLOPHOSPHAMIDE [Suspect]
     Active Substance: CYCLOPHOSPHAMIDE
     Dosage: 1 DOSAGE FORM (1 G, MONTHLY DOSE DECREASED, 3RD CYCLE )
     Route: 042
     Dates: start: 20130709
  14. CYCLOPHOSPHAMIDE [Suspect]
     Active Substance: CYCLOPHOSPHAMIDE
     Dosage: 700 DOSAGE FORM (700 MG/M3, FIRST CYCLE)
     Route: 042
     Dates: start: 20130503
  15. CYCLOPHOSPHAMIDE [Suspect]
     Active Substance: CYCLOPHOSPHAMIDE
     Dosage: 1 DOSAGE FORM (1 G)
     Route: 042
  16. CYCLOPHOSPHAMIDE [Suspect]
     Active Substance: CYCLOPHOSPHAMIDE
     Dosage: 1 UNK, MONTHLY
     Route: 042
  17. METHOTREXATE [Concomitant]
     Active Substance: METHOTREXATE
     Indication: Product used for unknown indication
     Dosage: UNK
     Route: 065

REACTIONS (25)
  - Device breakage [Unknown]
  - Dehydration [Unknown]
  - Gastrointestinal disorder [Unknown]
  - Respiratory failure [Unknown]
  - Nosocomial infection [Unknown]
  - Abdominal pain upper [Unknown]
  - Pulmonary fibrosis [Unknown]
  - Vomiting [Unknown]
  - Drug intolerance [Unknown]
  - Pulmonary hypertension [Unknown]
  - Chronic respiratory failure [Unknown]
  - Dry skin [Unknown]
  - Mucosal inflammation [Unknown]
  - Aphthous ulcer [Unknown]
  - Dyspnoea [Unknown]
  - Eyelid oedema [Unknown]
  - Asthenia [Unknown]
  - Bronchitis viral [Unknown]
  - Condition aggravated [Unknown]
  - Emphysema [Unknown]
  - Blood carbon monoxide decreased [Unknown]
  - Restrictive pulmonary disease [Unknown]
  - Pruritus [Unknown]
  - Decreased appetite [Unknown]
  - Vision blurred [Unknown]

NARRATIVE: CASE EVENT DATE: 20140514
